FAERS Safety Report 8850991 (Version 1)
Quarter: 2012Q4

REPORT INFORMATION
  Report Type: 
  Country: US (occurrence: US)
  Receive Date: 20121019
  Receipt Date: 20121019
  Transmission Date: 20130627
  Serious: Yes (Hospitalization)
  Sender: FDA-Public Use
  Company Number: US-NOVOPROD-361994

PATIENT
  Age: 76 Year
  Sex: Female
  Weight: 60.77 kg

DRUGS (1)
  1. VAGIFEM LD [Suspect]
     Indication: VULVOVAGINAL DRYNESS
     Dosage: 10 ?g, twice / week
     Route: 067
     Dates: start: 2002

REACTIONS (2)
  - Pulmonary embolism [Recovered/Resolved]
  - Deep vein thrombosis [Recovered/Resolved]
